FAERS Safety Report 14488431 (Version 1)
Quarter: 2018Q1

REPORT INFORMATION
  Report Type: Spontaneous
  Country: GB (occurrence: GB)
  Receive Date: 20180205
  Receipt Date: 20180205
  Transmission Date: 20180509
  Serious: Yes (Other)
  Sender: FDA-Public Use
  Company Number: GB-TEVA-2018-GB-854247

PATIENT
  Age: 84 Year
  Sex: Female

DRUGS (1)
  1. TRIMETHOPRIM. [Suspect]
     Active Substance: TRIMETHOPRIM
     Indication: URINARY TRACT INFECTION
     Dosage: 400 MILLIGRAM DAILY; 1AM AND 1PM. BEEN TAKING FOR 3 DAYS.
     Route: 065

REACTIONS (6)
  - Oral discomfort [Unknown]
  - Rash [Unknown]
  - Throat irritation [Unknown]
  - Decreased appetite [Unknown]
  - Dry mouth [Unknown]
  - Burning sensation [Unknown]
